FAERS Safety Report 21166301 (Version 2)
Quarter: 2022Q3

REPORT INFORMATION
  Report Type: Spontaneous
  Country: US (occurrence: None)
  Receive Date: 20220803
  Receipt Date: 20220825
  Transmission Date: 20221026
  Serious: Yes (Other)
  Sender: FDA-Public Use
  Company Number: 2022A268645

PATIENT
  Sex: Female

DRUGS (3)
  1. SAPHNELO [Suspect]
     Active Substance: ANIFROLUMAB-FNIA
     Indication: Systemic lupus erythematosus
     Dosage: UNKNOWN EVERY 3 OR 4 WEEKS
     Route: 042
     Dates: end: 202206
  2. METHOTREXATE [Concomitant]
     Active Substance: METHOTREXATE
     Dosage: 40 UNITS OF METHOTREXATE INJECTIONS AND THE DOCTOR LOWERED IT TO 30 UNITS BC SHE FEELS SHE IS HAV...
  3. COUMADIN [Concomitant]
     Active Substance: WARFARIN SODIUM

REACTIONS (2)
  - Recurrent cancer [Not Recovered/Not Resolved]
  - Systemic lupus erythematosus [Unknown]
